FAERS Safety Report 6816469-9 (Version None)
Quarter: 2010Q2

REPORT INFORMATION
  Report Type: 
  Country: None (occurrence: None)
  Receive Date: 20100630
  Receipt Date: 20100628
  Transmission Date: 20101027
  Serious: Yes (Life-Threatening)
  Sender: FDA-Public Use
  Company Number: FR-20100135

PATIENT
  Age: 11 Month
  Sex: Male

DRUGS (5)
  1. HEXABRIX 320 (IOXAGLIC ACID), 09HX024A [Suspect]
     Indication: DRUG USE FOR UNKNOWN INDICATION
     Dosage: INTRA-ARTERIAL
     Route: 013
     Dates: start: 20100415, end: 20100415
  2. DIPRIVAN [Suspect]
     Indication: GENERAL ANAESTHESIA
     Dosage: 50 MG (50 MG, 1 IN 1 TOTAL) INTRAVENOUS (NOT OTHERWISE SPECIFIED)
     Route: 042
     Dates: start: 20100415, end: 20100415
  3. TRACRIUM [Suspect]
     Indication: GENERAL ANAESTHESIA
     Dosage: 5 MG (5 MG, 1 IN 1 TOTAL) INTRAVENOUS (NOT OTHERWISE SPECIFIED)
     Dates: start: 20100415, end: 20100415
  4. ATROPINE [Suspect]
     Indication: DRUG USE FOR UNKNOWN INDICATION
     Dosage: (150) INTRAVENOUS (NOT OTHERWISE SPECIFIED)
     Route: 042
     Dates: start: 20100415, end: 20100415
  5. SUFENTA (SUFENTANYL) [Suspect]
     Indication: GENERAL ANAESTHESIA
     Dosage: (2.5) INTRAVENOUS (NOT OTHERWISE SPECIFIED)
     Route: 042
     Dates: start: 20100415, end: 20100415

REACTIONS (5)
  - BRONCHOSPASM [None]
  - GENERALISED ERYTHEMA [None]
  - HYPOTENSION [None]
  - TACHYCARDIA [None]
  - VASOPLEGIA SYNDROME [None]
